FAERS Safety Report 11863804 (Version 2)
Quarter: 2016Q2

REPORT INFORMATION
  Report Type: Spontaneous
  Country: US (occurrence: US)
  Receive Date: 20151223
  Receipt Date: 20160512
  Transmission Date: 20160815
  Serious: Yes (Death, Other)
  Sender: FDA-Public Use
  Company Number: US-ROCHE-1680427

PATIENT
  Age: 82 Year
  Sex: Female

DRUGS (1)
  1. ACTIVASE [Suspect]
     Active Substance: ALTEPLASE
     Indication: CEREBROVASCULAR ACCIDENT
     Dosage: LOADING DOSE 9MG
     Route: 065
     Dates: start: 20151214

REACTIONS (4)
  - Cerebral haemorrhage [Fatal]
  - Neurological decompensation [Unknown]
  - Haemorrhage intracranial [Unknown]
  - Intracranial mass [Unknown]

NARRATIVE: CASE EVENT DATE: 20151214
